FAERS Safety Report 10711282 (Version 2)
Quarter: 2015Q1

REPORT INFORMATION
  Report Type: Spontaneous
  Country: GB (occurrence: GB)
  Receive Date: 20150114
  Receipt Date: 20150128
  Transmission Date: 20150721
  Serious: Yes (Hospitalization, Other)
  Sender: FDA-Public Use
  Company Number: GB-PFIZER INC-2015014409

PATIENT
  Sex: Female

DRUGS (2)
  1. VALIUM [Concomitant]
     Active Substance: DIAZEPAM
     Dosage: UNK
  2. PREGABALIN. [Suspect]
     Active Substance: PREGABALIN
     Indication: SCIATICA
     Dosage: UNK
     Dates: end: 20141224

REACTIONS (8)
  - Anxiety [Not Recovered/Not Resolved]
  - Feeling abnormal [Unknown]
  - Suicidal ideation [Unknown]
  - Feeling of despair [Unknown]
  - Crying [Unknown]
  - Hypoaesthesia [Unknown]
  - Chills [Unknown]
  - Drug ineffective [Unknown]
